FAERS Safety Report 9522710 (Version 1)
Quarter: 2013Q3

REPORT INFORMATION
  Report Type: Report from Study
  Country: CA (occurrence: CA)
  Receive Date: 20130913
  Receipt Date: 20130913
  Transmission Date: 20140515
  Serious: Yes (Hospitalization)
  Sender: FDA-Public Use
  Company Number: CA-ABBOTT-13P-028-1144888-00

PATIENT
  Age: 67 Year
  Sex: Female

DRUGS (1)
  1. HUMIRA [Suspect]
     Indication: PRODUCT USED FOR UNKNOWN INDICATION
     Route: 058
     Dates: start: 20120416

REACTIONS (5)
  - Blood pressure abnormal [Unknown]
  - Cystitis [Unknown]
  - Dizziness [Unknown]
  - Haemoglobin decreased [Unknown]
  - Fall [Recovered/Resolved]
